FAERS Safety Report 9897656 (Version 1)
Quarter: 2014Q1

REPORT INFORMATION
  Report Type: Spontaneous
  Country: US (occurrence: US)
  Receive Date: 20140214
  Receipt Date: 20140214
  Transmission Date: 20141002
  Serious: No
  Sender: FDA-Public Use
  Company Number: US-009507513-1402USA003667

PATIENT
  Sex: Female

DRUGS (2)
  1. CORICIDIN HBP COUGH AND COLD [Suspect]
     Indication: PRODUCT USED FOR UNKNOWN INDICATION
     Dosage: 1 DF, QD
     Route: 048
  2. CORICIDIN HBP COUGH AND COLD [Suspect]
     Dosage: 2 DF, ONCE
     Route: 048
     Dates: start: 20140123

REACTIONS (2)
  - Overdose [Unknown]
  - Somnolence [Not Recovered/Not Resolved]
